FAERS Safety Report 9494987 (Version 1)
Quarter: 2013Q3

REPORT INFORMATION
  Report Type: Spontaneous
  Country: US (occurrence: US)
  Receive Date: 20130903
  Receipt Date: 20130903
  Transmission Date: 20140515
  Serious: No
  Sender: FDA-Public Use
  Company Number: US-TEVA-428829USA

PATIENT
  Age: 39 Year
  Sex: Female
  Weight: 149.82 kg

DRUGS (7)
  1. PARAGARD 380A [Suspect]
     Indication: CONTRACEPTION
     Route: 015
     Dates: start: 20130826, end: 20130826
  2. LISINOPRIL [Concomitant]
     Indication: HYPERTENSION
     Dosage: 20 MILLIGRAM DAILY;
  3. TRIAMTERENE [Concomitant]
     Indication: HYPERTENSION
  4. GEODON [Concomitant]
     Indication: BIPOLAR DISORDER
     Dosage: 120 MILLIGRAM DAILY;
  5. RISPERIDONE [Concomitant]
     Indication: BIPOLAR DISORDER
     Dosage: 2 MILLIGRAM DAILY;
  6. TOPAMAX [Concomitant]
     Indication: WEIGHT CONTROL
     Dosage: 50 MILLIGRAM DAILY;
  7. OMEPRAZOLE [Concomitant]
     Indication: GASTROOESOPHAGEAL REFLUX DISEASE

REACTIONS (2)
  - Pelvic pain [Recovered/Resolved]
  - Complication of device insertion [Recovered/Resolved]
